FAERS Safety Report 7953637-7 (Version None)
Quarter: 2011Q4

REPORT INFORMATION
  Report Type: 
  Country: None (occurrence: None)
  Receive Date: 20111202
  Receipt Date: 20111121
  Transmission Date: 20120403
  Serious: Yes (Other)
  Sender: FDA-Public Use
  Company Number: US-ELI_LILLY_AND_COMPANY-US201110003128

PATIENT
  Sex: Male

DRUGS (6)
  1. HUMULIN 70/30 [Suspect]
     Dosage: 25 U, EACH EVENING
  2. HUMULIN 70/30 [Suspect]
     Dosage: 20 U, EACH MORNING
  3. HUMULIN 70/30 [Suspect]
     Dosage: 25 U, EACH EVENING
  4. HUMULIN 70/30 [Suspect]
     Indication: DIABETES MELLITUS
     Dosage: 20 U, EACH MORNING
  5. HUMULIN 70/30 [Suspect]
     Dosage: 20 U, EACH MORNING
  6. HUMULIN 70/30 [Suspect]
     Dosage: 25 U, EACH EVENING

REACTIONS (6)
  - HAEMORRHAGE [None]
  - BLOOD GLUCOSE INCREASED [None]
  - LOSS OF CONSCIOUSNESS [None]
  - INCORRECT DOSE ADMINISTERED [None]
  - NEUROPATHY PERIPHERAL [None]
  - BLOOD GLUCOSE DECREASED [None]
